FAERS Safety Report 5589421-1 (Version None)
Quarter: 2008Q1

REPORT INFORMATION
  Report Type: 
  Country: None (occurrence: None)
  Receive Date: 20080109
  Receipt Date: 20071227
  Transmission Date: 20080703
  Serious: Yes (Death)
  Sender: FDA-Public Use
  Company Number: DSJ-2007-10701

PATIENT
  Age: 79 Year
  Sex: Male

DRUGS (7)
  1. OLMESARTAN MEDOXOMIL [Suspect]
     Indication: HYPERTENSION
     Dosage: 20 MG (20 MG, 1 IN 1 D), PER ORAL
     Route: 048
     Dates: start: 20070501, end: 20071009
  2. CASODEX [Suspect]
     Indication: PROSTATE CANCER
     Dosage: 80 MG, (80 MG, 1 IN 1 D), PER ORAL
     Route: 048
     Dates: start: 20030101, end: 20071009
  3. TENORMIN [Suspect]
     Indication: HYPERTENSION
     Dosage: 25 MG (25 MG, 1 IN 1 D), PER ORAL
     Route: 048
     Dates: start: 19970101, end: 20071009
  4. SUNRYTHM             (PILSICAINIDE HYDROCHLORIDE) [Suspect]
     Indication: ATRIAL FIBRILLATION
     Dosage: 50 MG (2 IN 1 D), PER ORAL
     Route: 048
     Dates: start: 20030101, end: 20071009
  5. FAMOTIDINE [Suspect]
     Indication: GASTRIC ULCER
     Dosage: 10  MG (2 IN 1 D), PER ORAL
     Route: 048
     Dates: end: 20071009
  6. DEPAS                  (ETIZOLAM) [Suspect]
     Dosage: 0.5 MG (0,5 MG, 1 IN 1 D), PER ORAL
     Route: 048
     Dates: end: 20071009
  7. WARFARIN SODIUM [Concomitant]

REACTIONS (18)
  - ACTIVATED PARTIAL THROMBOPLASTIN TIME PROLONGED [None]
  - ACUTE RESPIRATORY FAILURE [None]
  - ANAEMIA [None]
  - BRONCHIECTASIS [None]
  - COMPUTERISED TOMOGRAM ABNORMAL [None]
  - GLUCOSE TOLERANCE IMPAIRED [None]
  - HAEMATURIA [None]
  - HAEMOPTYSIS [None]
  - INTERSTITIAL LUNG DISEASE [None]
  - MICROSCOPIC POLYANGIITIS [None]
  - NO THERAPEUTIC RESPONSE [None]
  - PROTHROMBIN TIME PROLONGED [None]
  - PULMONARY ALVEOLAR HAEMORRHAGE [None]
  - PULMONARY FIBROSIS [None]
  - RENAL ATROPHY [None]
  - RENAL DISORDER [None]
  - RENAL IMPAIRMENT [None]
  - SPLENOMEGALY [None]
